FAERS Safety Report 21243952 (Version 1)
Quarter: 2022Q3

REPORT INFORMATION
  Report Type: Report from Study
  Country: FR (occurrence: FR)
  Receive Date: 20220823
  Receipt Date: 20220823
  Transmission Date: 20221027
  Serious: Yes (Hospitalization, Other)
  Sender: FDA-Public Use
  Company Number: FR-ALNYLAM PHARMACEUTICALS, INC.-ALN-2022-002995

PATIENT

DRUGS (2)
  1. GIVLAARI [Suspect]
     Active Substance: GIVOSIRAN SODIUM
     Indication: Product used for unknown indication
     Dosage: EVERY 6 WEEKS
     Route: 065
  2. MORPHINE [Suspect]
     Active Substance: MORPHINE
     Indication: Product used for unknown indication
     Dosage: UNK

REACTIONS (12)
  - Adrenal disorder [Unknown]
  - Renal failure [Unknown]
  - Gastritis [Unknown]
  - Anxiety [Unknown]
  - Temperature intolerance [Unknown]
  - Blood uric acid increased [Unknown]
  - Blood pressure abnormal [Recovered/Resolved]
  - Insomnia [Unknown]
  - Dry mouth [Unknown]
  - Pruritus [Unknown]
  - Tachycardia [Unknown]
  - Fatigue [Unknown]

NARRATIVE: CASE EVENT DATE: 20220701
